FAERS Safety Report 22639048 (Version 1)
Quarter: 2023Q2

REPORT INFORMATION
  Report Type: Spontaneous
  Country: HU (occurrence: None)
  Receive Date: 20230626
  Receipt Date: 20230626
  Transmission Date: 20230722
  Serious: Yes (Hospitalization)
  Sender: FDA-Public Use
  Company Number: HU-ROCHE-3373027

PATIENT
  Age: 72 Year
  Sex: Male

DRUGS (2)
  1. ATEZOLIZUMAB [Suspect]
     Active Substance: ATEZOLIZUMAB
     Indication: Product used for unknown indication
     Dosage: 1200 MG TCN
     Route: 065
     Dates: start: 20220307, end: 202305
  2. BEVACIZUMAB [Suspect]
     Active Substance: BEVACIZUMAB
     Indication: Product used for unknown indication
     Dosage: 15 MG/BODY WEIGHT KG BEVACIZUMAB
     Route: 065
     Dates: start: 20220307, end: 202305

REACTIONS (3)
  - Hepatic function abnormal [Unknown]
  - Fatigue [Unknown]
  - Abdominal discomfort [Unknown]
